FAERS Safety Report 7008206-2 (Version None)
Quarter: 2010Q3

REPORT INFORMATION
  Report Type: 
  Country: None (occurrence: None)
  Receive Date: 20100922
  Receipt Date: 20100908
  Transmission Date: 20110219
  Serious: Yes (Life-Threatening, Hospitalization)
  Sender: FDA-Public Use
  Company Number: US-BAYER-201031150NA

PATIENT
  Age: 58 Year
  Sex: Female
  Weight: 50 kg

DRUGS (3)
  1. EOVIST [Suspect]
     Indication: NUCLEAR MAGNETIC RESONANCE IMAGING ABDOMINAL
     Dosage: TOTAL DAILY DOSE: 10 ML
     Route: 042
     Dates: start: 20100818, end: 20100818
  2. SOLU-MEDROL [Concomitant]
     Dosage: TOTAL DAILY DOSE: 125 ML
     Route: 042
     Dates: start: 20100818, end: 20100818
  3. SOLU-MEDROL [Concomitant]
     Dosage: TOTAL DAILY DOSE: 125 ML
     Route: 042
     Dates: start: 20100818, end: 20100818

REACTIONS (6)
  - DEPRESSED LEVEL OF CONSCIOUSNESS [None]
  - DYSARTHRIA [None]
  - DYSPNOEA [None]
  - OBSTRUCTIVE AIRWAYS DISORDER [None]
  - RESPIRATORY DISORDER [None]
  - TREMOR [None]
